FAERS Safety Report 12271484 (Version 1)
Quarter: 2016Q2

REPORT INFORMATION
  Report Type: Spontaneous
  Country: AT (occurrence: AT)
  Receive Date: 20160415
  Receipt Date: 20160415
  Transmission Date: 20160815
  Serious: Yes (Other)
  Sender: FDA-Public Use
  Company Number: PHHY2016AT038083

PATIENT
  Sex: Female

DRUGS (6)
  1. VOTRIENT [Suspect]
     Active Substance: PAZOPANIB HYDROCHLORIDE
     Dosage: 400 MG, QD
     Route: 065
     Dates: start: 20160203
  2. SUTENT [Suspect]
     Active Substance: SUNITINIB MALATE
     Indication: PRODUCT USED FOR UNKNOWN INDICATION
     Dosage: UNK
     Route: 065
  3. INLYTA [Suspect]
     Active Substance: AXITINIB
     Indication: PRODUCT USED FOR UNKNOWN INDICATION
     Route: 065
  4. TEMSIROLIMUS [Suspect]
     Active Substance: TEMSIROLIMUS
     Indication: PRODUCT USED FOR UNKNOWN INDICATION
     Dosage: UNK
     Route: 065
     Dates: start: 20150430
  5. VOTRIENT [Suspect]
     Active Substance: PAZOPANIB HYDROCHLORIDE
     Indication: CLEAR CELL RENAL CELL CARCINOMA
     Dosage: 800 MG, UNK
     Route: 065
  6. SUTENT [Suspect]
     Active Substance: SUNITINIB MALATE
     Dosage: UNK
     Route: 065
     Dates: start: 201601

REACTIONS (12)
  - Hyperthyroidism [Unknown]
  - Pneumonia [Unknown]
  - Productive cough [Unknown]
  - Type 1 diabetes mellitus [Unknown]
  - Deafness unilateral [Unknown]
  - Malignant neoplasm progression [Unknown]
  - Metastases to adrenals [Unknown]
  - Hypertension [Unknown]
  - Metastases to ovary [Unknown]
  - Goitre [Unknown]
  - Diarrhoea [Unknown]
  - Drug intolerance [Unknown]

NARRATIVE: CASE EVENT DATE: 201503
